FAERS Safety Report 18578230 (Version 1)
Quarter: 2020Q4

REPORT INFORMATION
  Report Type: Spontaneous
  Country: BG (occurrence: BG)
  Receive Date: 20201204
  Receipt Date: 20201204
  Transmission Date: 20210114
  Serious: Yes (Hospitalization, Disabling, Other)
  Sender: FDA-Public Use
  Company Number: BG-TEVA-2020-BG-1854488

PATIENT
  Age: 74 Year
  Sex: Male

DRUGS (4)
  1. AMLODIPIN ALKALOID [Concomitant]
     Indication: HYPERTENSION
     Dosage: 5 MILLIGRAM DAILY;
     Route: 048
     Dates: start: 20110101, end: 20201030
  2. VALTENSIN PLUS 160 MG/25 MG [Suspect]
     Active Substance: HYDROCHLOROTHIAZIDE\VALSARTAN
     Indication: HYPERTENSION
     Dosage: 1 DOSAGE FORMS DAILY; FOR ACTIVE INGREDIENT VALSARTAN THE STRENGTH IS 160 MILLIGRAM .?FOR ACTIVE ING
     Route: 048
     Dates: start: 20110101, end: 20180101
  3. CO-VALSACOR 160 MG + 12,5 MG [Suspect]
     Active Substance: HYDROCHLOROTHIAZIDE\VALSARTAN
     Indication: HYPERTENSION
     Dosage: 1 DOSAGE FORMS DAILY; FOR ACTIVE INGREDIENT VALSARTAN THE STRENGTH IS 160 MILLIGRAM .?FOR ACTIVE ING
     Route: 048
     Dates: start: 20180101, end: 20200901
  4. CONCOR 5 MG [Concomitant]
     Active Substance: BISOPROLOL FUMARATE
     Indication: HYPERTENSION
     Dosage: 5 MILLIGRAM DAILY;
     Route: 048
     Dates: start: 20110101, end: 20201030

REACTIONS (3)
  - Malignant melanoma [Recovering/Resolving]
  - Sarcoma [Recovering/Resolving]
  - Colorectal adenocarcinoma [Recovering/Resolving]
